FAERS Safety Report 24141853 (Version 1)
Quarter: 2024Q3

REPORT INFORMATION
  Report Type: Spontaneous
  Country: ES (occurrence: ES)
  Receive Date: 20240726
  Receipt Date: 20240726
  Transmission Date: 20241017
  Serious: Yes (Hospitalization, Other)
  Sender: PFIZER
  Company Number: ES-Accord-435674

PATIENT
  Age: 65 Year
  Sex: Male
  Weight: 67.2 kg

DRUGS (68)
  1. PACLITAXEL [Suspect]
     Active Substance: PACLITAXEL
     Indication: Ductal adenocarcinoma of pancreas
     Dosage: 230 MG, ONCE ON DAY 1, 8 AND 15
     Dates: start: 20231227, end: 20231227
  2. PACLITAXEL [Suspect]
     Active Substance: PACLITAXEL
     Dosage: 230 MG, ONCE ON DAY 1, 8 AND 15
     Dates: start: 20240108, end: 20240108
  3. PACLITAXEL [Suspect]
     Active Substance: PACLITAXEL
     Dosage: 230 MG, ONCE ON DAY 1, 8 AND 15
     Dates: start: 20240115, end: 20240115
  4. PACLITAXEL [Suspect]
     Active Substance: PACLITAXEL
     Dosage: 230 MG, ONCE ON DAY 1, 8 AND 15
     Dates: start: 20240219, end: 20240219
  5. PACLITAXEL [Suspect]
     Active Substance: PACLITAXEL
     Dosage: 230 MG, ONCE ON DAY 1, 8 AND 15
     Dates: start: 20231120, end: 20231120
  6. PACLITAXEL [Suspect]
     Active Substance: PACLITAXEL
     Dosage: 250 MG, ONCE ON DAY 1, 8 AND 15
     Dates: start: 20240325, end: 20240325
  7. PACLITAXEL [Suspect]
     Active Substance: PACLITAXEL
     Dosage: 230 MG, ONCE ON DAY 1, 8 AND 15
     Dates: start: 20231211, end: 20231211
  8. PACLITAXEL [Suspect]
     Active Substance: PACLITAXEL
     Dosage: 200 MG, ONCE ON DAY 1, 8 AND 15
     Dates: start: 20240603, end: 20240603
  9. PACLITAXEL [Suspect]
     Active Substance: PACLITAXEL
     Dosage: 230 MG, ONCE ON DAY 1, 8 AND 15
     Dates: start: 20230918, end: 20230918
  10. PACLITAXEL [Suspect]
     Active Substance: PACLITAXEL
     Dosage: 200 MG, ONCE ON DAY 1, 8 AND 15
     Dates: start: 20240520, end: 20240520
  11. PACLITAXEL [Suspect]
     Active Substance: PACLITAXEL
     Dosage: 230 MG, ONCE ON DAY 1, 8 AND 15
     Dates: start: 20231002, end: 20231002
  12. PACLITAXEL [Suspect]
     Active Substance: PACLITAXEL
     Dosage: 200 MG, ONCE ON DAY 1, 8 AND 15
     Dates: start: 20240506, end: 20240506
  13. PACLITAXEL [Suspect]
     Active Substance: PACLITAXEL
     Dosage: 230 MG, ONCE ON DAY 1, 8 AND 15
     Dates: start: 20240226, end: 20240226
  14. PACLITAXEL [Suspect]
     Active Substance: PACLITAXEL
     Dosage: 230 MG, ONCE ON DAY 1, 8 AND 15
     Dates: start: 20240205, end: 20240205
  15. PACLITAXEL [Suspect]
     Active Substance: PACLITAXEL
     Dosage: 230 MG, ONCE ON DAY 1, 8 AND 15
     Dates: start: 20240122, end: 20240122
  16. PACLITAXEL [Suspect]
     Active Substance: PACLITAXEL
     Dosage: 230 MG, ONCE ON DAY 1, 8 AND 15
     Dates: start: 20231023, end: 20231023
  17. PACLITAXEL [Suspect]
     Active Substance: PACLITAXEL
     Dosage: 200 MG, ONCE ON DAY 1, 8 AND 15
     Dates: start: 20240415, end: 20240415
  18. PACLITAXEL [Suspect]
     Active Substance: PACLITAXEL
     Dosage: 230 MG, ONCE ON DAY 1, 8 AND 15
     Dates: start: 20240311, end: 20240311
  19. PACLITAXEL [Suspect]
     Active Substance: PACLITAXEL
     Dosage: 230 MG, ONCE ON DAY 1, 8 AND 15
     Dates: start: 20230925, end: 20230925
  20. PACLITAXEL [Suspect]
     Active Substance: PACLITAXEL
     Dosage: 230 MG, ONCE ON DAY 1, 8 AND 15
     Dates: start: 20231127, end: 20231127
  21. PACLITAXEL [Suspect]
     Active Substance: PACLITAXEL
     Dosage: 230 MG, ONCE ON DAY 1, 8 AND 15
     Dates: start: 20231016, end: 20231016
  22. PACLITAXEL [Suspect]
     Active Substance: PACLITAXEL
     Dosage: 230 MG, ONCE ON DAY 1, 8 AND 15
     Dates: start: 20231113, end: 20231113
  23. PACLITAXEL [Suspect]
     Active Substance: PACLITAXEL
     Dosage: 230 MG, ONCE ON DAY 1, 8 AND 15
     Dates: start: 20231030, end: 20231030
  24. GEMCITABINE HYDROCHLORIDE [Suspect]
     Active Substance: GEMCITABINE HYDROCHLORIDE
     Dosage: 1800 MG, ONCE ON DAY 1, 8 AND 15
     Dates: start: 20231211, end: 20231211
  25. GEMCITABINE HYDROCHLORIDE [Suspect]
     Active Substance: GEMCITABINE HYDROCHLORIDE
     Dosage: 1800 MG, ONCE ON DAY 1, 8 AND 15
     Dates: start: 20231227, end: 20231227
  26. GEMCITABINE HYDROCHLORIDE [Suspect]
     Active Substance: GEMCITABINE HYDROCHLORIDE
     Dosage: 1800 MG, ONCE ON DAY 1, 8 AND 15
     Dates: start: 20231016, end: 20231016
  27. GEMCITABINE HYDROCHLORIDE [Suspect]
     Active Substance: GEMCITABINE HYDROCHLORIDE
     Dosage: 1600 MG, ONCE ON DAY 1, 8 AND 15
     Dates: start: 20240520, end: 20240520
  28. GEMCITABINE HYDROCHLORIDE [Suspect]
     Active Substance: GEMCITABINE HYDROCHLORIDE
     Dosage: 2000 MG, ONCE ON DAY 1, 8 AND 15
     Dates: start: 20240325, end: 20240325
  29. GEMCITABINE HYDROCHLORIDE [Suspect]
     Active Substance: GEMCITABINE HYDROCHLORIDE
     Dosage: 1900 MG, ONCE ON DAY 1, 8 AND 15
     Dates: start: 20240122, end: 20240122
  30. GEMCITABINE HYDROCHLORIDE [Suspect]
     Active Substance: GEMCITABINE HYDROCHLORIDE
     Dosage: 1900 MG, ONCE ON DAY 1, 8 AND 15
     Dates: start: 20240311, end: 20240311
  31. GEMCITABINE HYDROCHLORIDE [Suspect]
     Active Substance: GEMCITABINE HYDROCHLORIDE
     Dosage: 1800 MG, ONCE ON DAY 1, 8 AND 15
     Dates: start: 20231127, end: 20231127
  32. GEMCITABINE HYDROCHLORIDE [Suspect]
     Active Substance: GEMCITABINE HYDROCHLORIDE
     Dosage: 1800 MG, ONCE ON DAY 1, 8 AND 15
     Dates: start: 20231023, end: 20231023
  33. GEMCITABINE HYDROCHLORIDE [Suspect]
     Active Substance: GEMCITABINE HYDROCHLORIDE
     Dosage: 1800 MG, ONCE ON DAY 1, 8 AND 15
     Dates: start: 20230918, end: 20230918
  34. GEMCITABINE HYDROCHLORIDE [Suspect]
     Active Substance: GEMCITABINE HYDROCHLORIDE
     Dosage: 1900 MG, ONCE ON DAY 1, 8 AND 15
     Dates: start: 20240205, end: 20240205
  35. GEMCITABINE HYDROCHLORIDE [Suspect]
     Active Substance: GEMCITABINE HYDROCHLORIDE
     Dosage: 1900 MG, ONCE ON DAY 1, 8 AND 15
     Dates: start: 20240226, end: 20240226
  36. GEMCITABINE HYDROCHLORIDE [Suspect]
     Active Substance: GEMCITABINE HYDROCHLORIDE
     Dosage: 1900 MG, ONCE ON DAY 1, 8 AND 15
     Dates: start: 20240115, end: 20240115
  37. GEMCITABINE HYDROCHLORIDE [Suspect]
     Active Substance: GEMCITABINE HYDROCHLORIDE
     Dosage: 1800 MG, ONCE ON DAY 1, 8 AND 15
     Dates: start: 20231002, end: 20231002
  38. GEMCITABINE HYDROCHLORIDE [Suspect]
     Active Substance: GEMCITABINE HYDROCHLORIDE
     Dosage: 1600 MG, ONCE ON DAY 1, 8 AND 15
     Dates: start: 20240415, end: 20240415
  39. GEMCITABINE HYDROCHLORIDE [Suspect]
     Active Substance: GEMCITABINE HYDROCHLORIDE
     Dosage: 1800 MG, ONCE ON DAY 1, 8 AND 15
     Dates: start: 20231120, end: 20231120
  40. GEMCITABINE HYDROCHLORIDE [Suspect]
     Active Substance: GEMCITABINE HYDROCHLORIDE
     Dosage: 1800 MG, ONCE ON DAY 1, 8 AND 15
     Dates: start: 20231030, end: 20231030
  41. GEMCITABINE HYDROCHLORIDE [Suspect]
     Active Substance: GEMCITABINE HYDROCHLORIDE
     Dosage: 1800 MG, ONCE ON DAY 1, 8 AND 15
     Dates: start: 20231218, end: 20231218
  42. GEMCITABINE HYDROCHLORIDE [Suspect]
     Active Substance: GEMCITABINE HYDROCHLORIDE
     Dosage: 1600 MG, ONCE ON DAY 1, 8 AND 15
     Dates: start: 20240506, end: 20240506
  43. GEMCITABINE HYDROCHLORIDE [Suspect]
     Active Substance: GEMCITABINE HYDROCHLORIDE
     Dosage: 1600 MG, ONCE ON DAY 1, 8 AND 15
     Dates: start: 20240603, end: 20240603
  44. GEMCITABINE HYDROCHLORIDE [Suspect]
     Active Substance: GEMCITABINE HYDROCHLORIDE
     Dosage: 1800 MG, ONCE ON DAY 1, 8 AND 15
     Dates: start: 20230925, end: 20230925
  45. GEMCITABINE HYDROCHLORIDE [Suspect]
     Active Substance: GEMCITABINE HYDROCHLORIDE
     Dosage: 1800 MG, ONCE ON DAY 1, 8 AND 15
     Dates: start: 20231113, end: 20231113
  46. GEMCITABINE HYDROCHLORIDE [Suspect]
     Active Substance: GEMCITABINE HYDROCHLORIDE
     Dosage: 1900 MG, ONCE ON DAY 1, 8 AND 15
     Dates: start: 20240108, end: 20240108
  47. GEMCITABINE HYDROCHLORIDE [Suspect]
     Active Substance: GEMCITABINE HYDROCHLORIDE
     Dosage: 1900 MG, ONCE ON DAY 1, 8 AND 15
     Dates: start: 20240219, end: 20240219
  48. TRAMADOL HYDROCHLORIDE [Concomitant]
     Active Substance: TRAMADOL HYDROCHLORIDE
     Indication: Pain prophylaxis
     Dosage: 50 MG, 1 IN 1 DAY
     Route: 048
  49. ROSUVASTATIN [Concomitant]
     Active Substance: ROSUVASTATIN\ROSUVASTATIN CALCIUM
     Indication: Dyslipidaemia
     Dosage: 10 MG, 1 IN 1 DAY
     Route: 048
  50. DOXAZOSIN [Concomitant]
     Active Substance: DOXAZOSIN MESYLATE
     Indication: Hypertension
     Dosage: 4 MG, 1 IN 1 DAY
     Route: 048
     Dates: start: 20240309
  51. ENALAPRIL [Concomitant]
     Active Substance: ENALAPRIL
     Indication: Hypertension
     Dosage: 20 MG, 1 IN 1 DAY
     Route: 048
  52. ONDANSETRON [Concomitant]
     Active Substance: ONDANSETRON
     Indication: Premedication
     Dosage: UNK UNK, 1X/DAY
     Dates: start: 20240520, end: 20240520
  53. OMEPRAZOLE [Concomitant]
     Active Substance: OMEPRAZOLE
     Indication: Prophylaxis
     Dosage: 20 MG, 1 IN 1 DAY
     Route: 048
  54. METAMIZOLE [Concomitant]
     Active Substance: METAMIZOLE
     Indication: Prophylaxis
     Dosage: 575 MG, 1 IN 1 DAY
     Route: 048
  55. HYDROCHLOROTHIAZIDE [Concomitant]
     Active Substance: HYDROCHLOROTHIAZIDE
     Indication: Hypertension
     Dosage: 12.5 MG
     Route: 048
  56. HYDROCHLOROTHIAZIDE [Concomitant]
     Active Substance: HYDROCHLOROTHIAZIDE
     Dosage: 12.5 MG, 1 IN 1 DAY
     Route: 048
  57. SITAGLIPTIN [Concomitant]
     Active Substance: SITAGLIPTIN
     Indication: Diabetes mellitus
     Dosage: 100 MG, 1 IN 1 DAY
     Route: 048
  58. CLOTRIMAZOLE [Concomitant]
     Active Substance: CLOTRIMAZOLE
     Indication: Eczema
     Dosage: 10 MG, 1 IN 1 DAY
     Route: 061
     Dates: start: 20230925
  59. BETAMETHASONE DIPROPIONATE [Concomitant]
     Active Substance: BETAMETHASONE DIPROPIONATE
     Indication: Eczema
     Dosage: UNK UNK, 1X/DAY
     Route: 061
     Dates: start: 20230925
  60. IRON [Concomitant]
     Active Substance: IRON
     Indication: Anaemia prophylaxis
     Dosage: UNK UNK, 1X/DAY
     Dates: start: 20240520, end: 20240520
  61. BISACODYL [Concomitant]
     Active Substance: BISACODYL
     Indication: Constipation prophylaxis
     Dosage: 5 MG, 1 IN 1 DAY
     Route: 048
     Dates: start: 20230920
  62. GLIMEPIRIDE [Concomitant]
     Active Substance: GLIMEPIRIDE
     Indication: Diabetes mellitus
     Dosage: 2 MG, 3 IN 1 DAY
     Route: 048
  63. SIMETHICONE (DIMETHICONE) [Concomitant]
     Active Substance: DIMETHICONE
     Indication: Prophylaxis
     Dosage: 40 MG, 1 IN 1 DAY
     Route: 048
  64. ACETYLCYSTEINE [Concomitant]
     Active Substance: ACETYLCYSTEINE
     Indication: Nasopharyngitis
     Dosage: UNK UNK, 1X/DAY
     Route: 048
     Dates: start: 20231227
  65. ACETAMINOPHEN [Concomitant]
     Active Substance: ACETAMINOPHEN
     Indication: Prophylaxis
     Dosage: 500 MG, 1 IN 1 DAY
     Route: 048
  66. ACETAMINOPHEN [Concomitant]
     Active Substance: ACETAMINOPHEN
     Indication: Pain prophylaxis
     Dosage: 650 MG, 3 IN 1 DAY
     Route: 048
  67. CLEBOPRIDE [Concomitant]
     Active Substance: CLEBOPRIDE
     Indication: Prophylaxis
     Dosage: 100 MCG, 1 IN 1 DAY
     Route: 048
  68. TRAMADOL HYDROCHLORIDE [Concomitant]
     Active Substance: TRAMADOL HYDROCHLORIDE
     Indication: Pain prophylaxis
     Dosage: 75 MG, 3 IN 1 DAY

REACTIONS (2)
  - Renal impairment [Recovering/Resolving]
  - Off label use [Unknown]

NARRATIVE: CASE EVENT DATE: 20231227
